FAERS Safety Report 8518643-2 (Version None)
Quarter: 2012Q3

REPORT INFORMATION
  Report Type: 
  Country: None (occurrence: None)
  Receive Date: 20120718
  Receipt Date: 20070226
  Transmission Date: 20120928
  Serious: Yes (Other)
  Sender: FDA-Public Use
  Company Number: CO-PFIZER INC-2012170714

PATIENT
  Sex: Female

DRUGS (9)
  1. QUINAPRIL AND HYDROCHLOROTHIAZIDE [Suspect]
     Indication: HYPERTENSION
     Dosage: 20 MG/12.5 MG, 1X/DAY
  2. GLIBENCLAMIDE [Concomitant]
     Dosage: 5 MG EVERY 12 HOURS
  3. GLIBENCLAMIDE [Concomitant]
     Dosage: UNK
  4. METOPROLOL [Concomitant]
     Dosage: 50 MG, 2X/DAY
  5. ASPIRIN [Concomitant]
     Dosage: 100 MG, 1X/DAY
  6. GLIBENCLAMIDE [Concomitant]
     Dosage: 5 MG, 1X/DAY
  7. OLMESARTAN MEDOXOMIL AND HYDROCHLOROTHIZIDE [Suspect]
     Indication: HYPERTENSION
     Dosage: 20 MG/12.5 MG, 1X/DAY
  8. LOSARTAN [Concomitant]
     Dosage: 100 MG, 2X/DAY
  9. LIPITOR [Suspect]
     Indication: DYSLIPIDAEMIA
     Dosage: 10 MG, 1X/DAY

REACTIONS (8)
  - HYPERTENSIVE EMERGENCY [None]
  - OEDEMA [None]
  - CRYSTALLURIA [None]
  - ANGIOPLASTY [None]
  - HEADACHE [None]
  - LEUKOCYTURIA [None]
  - CEREBROVASCULAR ACCIDENT [None]
  - OBESITY [None]
